FAERS Safety Report 5822276-6 (Version None)
Quarter: 2008Q3

REPORT INFORMATION
  Report Type: 
  Country: None (occurrence: None)
  Receive Date: 20080723
  Receipt Date: 20080723
  Transmission Date: 20090109
  Serious: No
  Sender: FDA-Public Use
  Company Number: None

PATIENT
  Sex: Female
  Weight: 75.2064 kg

DRUGS (1)
  1. TREANDA [Suspect]
     Indication: NON-HODGKIN'S LYMPHOMA
     Dosage: 90MG/M2 -164MG- DAYS 2 + 3 OF 28 DAY CYCLE  IV
     Route: 042
     Dates: start: 20080702, end: 20080703

REACTIONS (3)
  - DIARRHOEA [None]
  - OEDEMA PERIPHERAL [None]
  - RASH [None]
